FAERS Safety Report 19699761 (Version 1)
Quarter: 2021Q3

REPORT INFORMATION
  Report Type: Spontaneous
  Country: NL (occurrence: NL)
  Receive Date: 20210814
  Receipt Date: 20210814
  Transmission Date: 20211014
  Serious: Yes (Life-Threatening, Hospitalization)
  Sender: FDA-Public Use
  Company Number: NL-ROCHE-2890463

PATIENT
  Sex: Female
  Weight: 60 kg

DRUGS (12)
  1. METFORMIN [Concomitant]
     Active Substance: METFORMIN HYDROCHLORIDE
     Dosage: TABLET MET GEREGULEERDE AFGIFTE, 500 MG (MILLIGRAM)
  2. ISOSORBIDEMONONITRAAT [Concomitant]
     Dosage: TABLET MET GEREGULEERDE AFGIFTE, 30 MG (MILLIGRAM)
  3. RITUXIMAB. [Suspect]
     Active Substance: RITUXIMAB
     Indication: RHEUMATOID ARTHRITIS
     Route: 065
     Dates: start: 20210707, end: 20210707
  4. PANTOPRAZOLE [Concomitant]
     Active Substance: PANTOPRAZOLE
     Dosage: MAAGSAPRESISTENTE TABLET, 40 MG (MILLIGRAM)
  5. LOSARTAN. [Concomitant]
     Active Substance: LOSARTAN
     Dosage: FILMOMHULDE TABLET, 50 MG (MILLIGRAM)
  6. RISEDRONIC ACID [Concomitant]
     Active Substance: RISEDRONIC ACID
     Dosage: FILMOMHULDE TABLET, 35 MG (MILLIGRAM)
  7. GLICLAZIDE [Concomitant]
     Active Substance: GLICLAZIDE
  8. EDOXABAN [Concomitant]
     Active Substance: EDOXABAN TOSYLATE
     Dosage: TABLET, 60 MG (MILLIGRAM)
  9. LEFLUNOMIDE. [Concomitant]
     Active Substance: LEFLUNOMIDE
     Dosage: TABLET, 10 MG (MILLIGRAM)
  10. ATORVASTATINE [Concomitant]
     Active Substance: ATORVASTATIN
     Dosage: TABLET, 40 MG (MILLIGRAM)
  11. PREDNISONE. [Concomitant]
     Active Substance: PREDNISONE
  12. METOPROLOL. [Concomitant]
     Active Substance: METOPROLOL
     Dosage: TABLET MET GEREGULEERDE AFGIFTE, 100 MG (MILLIGRAM)

REACTIONS (1)
  - Cardiac asthma [Recovered/Resolved]
